FAERS Safety Report 16593065 (Version 1)
Quarter: 2019Q3

REPORT INFORMATION
  Report Type: Spontaneous
  Country: US (occurrence: US)
  Receive Date: 20190718
  Receipt Date: 20190718
  Transmission Date: 20191004
  Serious: Yes (Hospitalization)
  Sender: FDA-Public Use
  Company Number: US-ASTRAZENECA-2019SF01569

PATIENT
  Age: 68 Year
  Sex: Female

DRUGS (1)
  1. FASENRA [Suspect]
     Active Substance: BENRALIZUMAB
     Route: 058
     Dates: start: 20180925, end: 20190625

REACTIONS (3)
  - Drug ineffective [Not Recovered/Not Resolved]
  - Eosinophil count increased [Unknown]
  - Asthma [Unknown]
